FAERS Safety Report 18556502 (Version 13)
Quarter: 2025Q2

REPORT INFORMATION
  Report Type: Report from Study
  Country: US (occurrence: US)
  Receive Date: 20201128
  Receipt Date: 20250615
  Transmission Date: 20250716
  Serious: Yes (Hospitalization)
  Sender: TAKEDA
  Company Number: US-TAKEDA-2020TUS053127

PATIENT
  Sex: Female

DRUGS (9)
  1. HUMAN C1-ESTERASE INHIBITOR [Suspect]
     Active Substance: HUMAN C1-ESTERASE INHIBITOR
     Indication: Immune system disorder
     Dosage: 1500 INTERNATIONAL UNIT, 3/WEEK
     Dates: start: 20160825
  2. HUMAN C1-ESTERASE INHIBITOR [Suspect]
     Active Substance: HUMAN C1-ESTERASE INHIBITOR
     Indication: Polycystic ovarian syndrome
     Dosage: 1500 INTERNATIONAL UNIT, 3/WEEK
     Dates: start: 20160826
  3. HUMAN C1-ESTERASE INHIBITOR [Suspect]
     Active Substance: HUMAN C1-ESTERASE INHIBITOR
     Indication: Uterine disorder
     Dosage: 1500 INTERNATIONAL UNIT, 3/WEEK
     Dates: start: 20161102
  4. HUMAN C1-ESTERASE INHIBITOR [Suspect]
     Active Substance: HUMAN C1-ESTERASE INHIBITOR
     Indication: Vaginal haemorrhage
     Dosage: 1500 INTERNATIONAL UNIT, 2/WEEK
     Dates: start: 201706
  5. FIRAZYR [Suspect]
     Active Substance: ICATIBANT ACETATE
     Indication: Immune system disorder
  6. FIRAZYR [Suspect]
     Active Substance: ICATIBANT ACETATE
     Indication: Polycystic ovarian syndrome
  7. FIRAZYR [Suspect]
     Active Substance: ICATIBANT ACETATE
     Indication: Uterine disorder
  8. FIRAZYR [Suspect]
     Active Substance: ICATIBANT ACETATE
     Indication: Vaginal haemorrhage
  9. ICATIBANT ACETATE [Concomitant]
     Active Substance: ICATIBANT ACETATE

REACTIONS (2)
  - Hereditary angioedema [Recovered/Resolved]
  - Weight decreased [Unknown]
